FAERS Safety Report 9467150 (Version 1)
Quarter: 2013Q3

REPORT INFORMATION
  Report Type: Spontaneous
  Country: US (occurrence: US)
  Receive Date: 20130820
  Receipt Date: 20130820
  Transmission Date: 20140515
  Serious: No
  Sender: FDA-Public Use
  Company Number: US-009507513-1308USA005416

PATIENT
  Sex: Female

DRUGS (3)
  1. VICTRELIS [Suspect]
     Indication: HEPATITIS C
     Dosage: 200MG CAPSULES, 4 CAPSULES 3 TIMES A DAY
     Route: 048
     Dates: start: 201305
  2. RIBASPHERE [Suspect]
  3. PEGASYS [Suspect]
     Dosage: WITHHELD THE DOSE FOR 2 WEEKS
     Dates: end: 20130723

REACTIONS (1)
  - Blood count abnormal [Unknown]
